FAERS Safety Report 10021278 (Version 4)
Quarter: 2014Q2

REPORT INFORMATION
  Report Type: Spontaneous
  Country: IT (occurrence: None)
  Receive Date: 20140313
  Receipt Date: 20140512
  Transmission Date: 20141212
  Serious: Yes (Hospitalization)
  Sender: FDA-Public Use
  Company Number: AUR-APL-2014-02660

PATIENT
  Age: 83 Year
  Sex: Female

DRUGS (9)
  1. LEVOFLOXACIN [Suspect]
     Indication: BRONCHOPNEUMONIA
     Dosage: (500 MG, 1 D)
     Route: 048
     Dates: start: 20140115, end: 20140129
  2. COUMADIN [Suspect]
     Indication: PULMONARY EMBOLISM
     Route: 048
     Dates: start: 20120929, end: 20140129
  3. COUMADIN [Suspect]
     Indication: THROMBOPHLEBITIS SUPERFICIAL
     Route: 048
     Dates: start: 20120929, end: 20140129
  4. DELTACORTENE [Suspect]
     Indication: INFECTIVE EXACERBATION OF CHRONIC OBSTRUCTIVE AIRWAYS DISEASE
     Dosage: (25 MG, 1 D)
     Route: 048
     Dates: start: 20140109, end: 20140115
  5. LASIX (FUROSEMIDE) [Concomitant]
  6. LOSARTAN POTASSIUM (LOSARTAN POTASIUM) [Concomitant]
  7. EPREX (EPOETIN ALFA) [Concomitant]
  8. ALLOPURINOL (ALLOPURINOL) [Concomitant]
  9. PANTOPRAZOLE (PANTOPRAZOLE) [Concomitant]

REACTIONS (3)
  - International normalised ratio increased [None]
  - Bronchopneumonia [None]
  - Infective exacerbation of chronic obstructive airways disease [None]
